FAERS Safety Report 19156604 (Version 2)
Quarter: 2021Q2

REPORT INFORMATION
  Report Type: Spontaneous
  Country: PT (occurrence: PT)
  Receive Date: 20210420
  Receipt Date: 20210519
  Transmission Date: 20210717
  Serious: Yes (Other)
  Sender: FDA-Public Use
  Company Number: PT-AUROBINDO-AUR-APL-2021-015661

PATIENT
  Age: 51 Year
  Sex: Female

DRUGS (90)
  1. PALEXIA [Suspect]
     Active Substance: TAPENTADOL HYDROCHLORIDE
     Indication: SLEEP DISORDER
     Dosage: 50 MILLIGRAM
     Route: 065
  2. TARGIN [Suspect]
     Active Substance: NALOXONE HYDROCHLORIDE\OXYCODONE HYDROCHLORIDE
     Indication: SLEEP DISORDER
  3. TRANSTEC [Suspect]
     Active Substance: BUPRENORPHINE
     Indication: SKIN DISORDER
  4. UNISEDIL [Suspect]
     Active Substance: DIAZEPAM
     Indication: COMPLEX REGIONAL PAIN SYNDROME
     Dosage: UNK
     Route: 065
  5. VENLAFAXINE SANDOZ [Suspect]
     Active Substance: VENLAFAXINE HYDROCHLORIDE
     Indication: COMPLEX REGIONAL PAIN SYNDROME
  6. AMITRIPTYLINE [Suspect]
     Active Substance: AMITRIPTYLINE
     Indication: PRODUCT USED FOR UNKNOWN INDICATION
     Dosage: UNK
     Route: 065
  7. ADT [Suspect]
     Active Substance: AMITRIPTYLINE HYDROCHLORIDE
     Indication: COMPLEX REGIONAL PAIN SYNDROME
     Dosage: 25 MILLIGRAM
     Route: 065
  8. FOSAVANCE [Suspect]
     Active Substance: ALENDRONATE SODIUM\CHOLECALCIFEROL
     Indication: COMPLEX REGIONAL PAIN SYNDROME
  9. IBUPROFENE MYLAN [Suspect]
     Active Substance: IBUPROFEN
     Indication: SLEEP DISORDER
     Dosage: UNK
     Route: 065
  10. NORTRIPTYLINE [Suspect]
     Active Substance: NORTRIPTYLINE
     Indication: SLEEP DISORDER
  11. PARACETAMOL ALTER [Suspect]
     Active Substance: ACETAMINOPHEN
     Indication: SKIN DISORDER
  12. ROSILAN [Suspect]
     Active Substance: DEFLAZACORT
     Indication: SLEEP DISORDER
  13. DOLOCALMA [Suspect]
     Active Substance: METAMIZOLE MAGNESIUM
     Indication: COMPLEX REGIONAL PAIN SYNDROME
  14. DEFLAZACORTE 30 MG [Suspect]
     Active Substance: DEFLAZACORT
     Indication: SLEEP DISORDER
     Dosage: UNK
     Route: 065
  15. DEFLAZACORTE 30 MG [Suspect]
     Active Substance: DEFLAZACORT
     Indication: SKIN DISORDER
  16. ADT [Suspect]
     Active Substance: AMITRIPTYLINE HYDROCHLORIDE
     Indication: SKIN DISORDER
     Dosage: 10 MILLIGRAM
     Route: 065
  17. ADT [Suspect]
     Active Substance: AMITRIPTYLINE HYDROCHLORIDE
     Indication: SLEEP DISORDER
  18. EFEXOR [Suspect]
     Active Substance: VENLAFAXINE HYDROCHLORIDE
     Indication: SKIN DISORDER
  19. EXXIV [Suspect]
     Active Substance: ETORICOXIB
     Indication: SKIN DISORDER
     Dosage: UNK
     Route: 065
  20. IBURON [Suspect]
     Active Substance: IBUPROFEN
     Indication: SKIN DISORDER
  21. LYRICA [Suspect]
     Active Substance: PREGABALIN
     Indication: PRODUCT USED FOR UNKNOWN INDICATION
     Dosage: 600 MILLIGRAM, ONCE A DAY (300 MILLIGRAM, BID)
     Route: 065
  22. NAPROSYN [Suspect]
     Active Substance: NAPROXEN
     Indication: SKIN DISORDER
  23. NAPROSYN [Suspect]
     Active Substance: NAPROXEN
     Indication: COMPLEX REGIONAL PAIN SYNDROME
  24. ROSILAN [Suspect]
     Active Substance: DEFLAZACORT
     Indication: SKIN DISORDER
  25. TRENTAL [Suspect]
     Active Substance: PENTOXIFYLLINE
     Indication: SLEEP DISORDER
     Dosage: UNK
     Route: 065
  26. DEFLAZACORTE 6 MG [Suspect]
     Active Substance: DEFLAZACORT
     Indication: SLEEP DISORDER
  27. DULOXETIN TEVA [Suspect]
     Active Substance: DULOXETINE HYDROCHLORIDE
     Indication: SLEEP DISORDER
     Dosage: UNK
     Route: 065
  28. DULOXETIN TEVA [Suspect]
     Active Substance: DULOXETINE HYDROCHLORIDE
     Indication: COMPLEX REGIONAL PAIN SYNDROME
  29. EFEXOR [Suspect]
     Active Substance: VENLAFAXINE HYDROCHLORIDE
     Indication: SLEEP DISORDER
     Dosage: 150 MILLIGRAM, ONCE A DAY
     Route: 065
  30. EXXIV [Suspect]
     Active Substance: ETORICOXIB
     Indication: SLEEP DISORDER
  31. FOSAVANCE [Suspect]
     Active Substance: ALENDRONATE SODIUM\CHOLECALCIFEROL
     Indication: SLEEP DISORDER
     Dosage: UNK,70MG/5600UI
     Route: 065
  32. NAPROSYN [Suspect]
     Active Substance: NAPROXEN
     Indication: SLEEP DISORDER
     Dosage: UNK
     Route: 065
  33. NORTRIPTYLINE [Suspect]
     Active Substance: NORTRIPTYLINE
     Indication: SKIN DISORDER
  34. PARACETAMOL ALTER [Suspect]
     Active Substance: ACETAMINOPHEN
     Indication: SLEEP DISORDER
     Dosage: UNK
     Route: 065
  35. THROMBOCID [PENTOSAN POLYSULFATE SODIUM] [Suspect]
     Active Substance: PENTOSAN POLYSULFATE SODIUM
     Indication: SKIN DISORDER
     Dosage: UNK
     Route: 065
  36. TRANSTEC [Suspect]
     Active Substance: BUPRENORPHINE
     Indication: COMPLEX REGIONAL PAIN SYNDROME
  37. TRENTAL [Suspect]
     Active Substance: PENTOXIFYLLINE
     Indication: COMPLEX REGIONAL PAIN SYNDROME
  38. VENLAFAXIN MYLAN [Interacting]
     Active Substance: VENLAFAXINE HYDROCHLORIDE
     Indication: COMPLEX REGIONAL PAIN SYNDROME
  39. VENLAFAXIN MYLAN [Interacting]
     Active Substance: VENLAFAXINE HYDROCHLORIDE
     Indication: SLEEP DISORDER
  40. ACEMETACIN [Suspect]
     Active Substance: ACEMETACIN
     Indication: PRODUCT USED FOR UNKNOWN INDICATION
     Dosage: 180 MILLIGRAM, ONCE A DAY (90 MILLIGRAM, BID)
     Route: 065
  41. ADT [Suspect]
     Active Substance: AMITRIPTYLINE HYDROCHLORIDE
     Indication: PRODUCT USED FOR UNKNOWN INDICATION
     Dosage: UNK
     Route: 065
  42. IBURON [Suspect]
     Active Substance: IBUPROFEN
     Indication: SLEEP DISORDER
  43. NORTRIPTYLINE [Suspect]
     Active Substance: NORTRIPTYLINE
     Indication: COMPLEX REGIONAL PAIN SYNDROME
     Dosage: UNK
     Route: 065
  44. PALEXIA [Suspect]
     Active Substance: TAPENTADOL HYDROCHLORIDE
     Indication: PRODUCT USED FOR UNKNOWN INDICATION
     Dosage: UNK
     Route: 065
  45. TRANSTEC [Suspect]
     Active Substance: BUPRENORPHINE
     Indication: SLEEP DISORDER
     Dosage: 37.5 MCG/H/ TRANSDERMAL
     Route: 065
  46. TRITICUM AC [Suspect]
     Active Substance: TRAZODONE HYDROCHLORIDE
     Indication: COMPLEX REGIONAL PAIN SYNDROME
     Dosage: UNK
     Route: 065
  47. TRITICUM AC [Suspect]
     Active Substance: TRAZODONE HYDROCHLORIDE
     Indication: SKIN DISORDER
  48. DOLOCALMA [Suspect]
     Active Substance: METAMIZOLE MAGNESIUM
     Indication: SLEEP DISORDER
  49. DEFLAZACORTE 6 MG [Suspect]
     Active Substance: DEFLAZACORT
     Indication: COMPLEX REGIONAL PAIN SYNDROME
     Dosage: UNK
     Route: 065
  50. DULOXETINE 30 MG [Suspect]
     Active Substance: DULOXETINE
     Indication: SKIN DISORDER
     Dosage: 60 MILLIGRAM
     Route: 065
  51. EFEXOR [Suspect]
     Active Substance: VENLAFAXINE HYDROCHLORIDE
     Indication: COMPLEX REGIONAL PAIN SYNDROME
  52. ETORICOXIB MYLAN [Suspect]
     Active Substance: ETORICOXIB
     Indication: COMPLEX REGIONAL PAIN SYNDROME
  53. ETORICOXIB MYLAN [Suspect]
     Active Substance: ETORICOXIB
     Indication: SLEEP DISORDER
  54. FOSAVANCE [Suspect]
     Active Substance: ALENDRONATE SODIUM\CHOLECALCIFEROL
     Indication: SKIN DISORDER
  55. IBUPROFENE MYLAN [Suspect]
     Active Substance: IBUPROFEN
     Indication: SKIN DISORDER
  56. LYRICA [Suspect]
     Active Substance: PREGABALIN
     Indication: SKIN DISORDER
     Dosage: 75 MILLIGRAM
     Route: 065
  57. LYRICA [Suspect]
     Active Substance: PREGABALIN
     Indication: COMPLEX REGIONAL PAIN SYNDROME
     Dosage: 150 MILLIGRAM
     Route: 065
  58. LYRICA [Suspect]
     Active Substance: PREGABALIN
     Indication: SLEEP DISORDER
  59. METAMIZOLE [Suspect]
     Active Substance: METAMIZOLE
     Indication: PRODUCT USED FOR UNKNOWN INDICATION
     Dosage: 575 MILLIGRAM, ONCE A DAY
     Route: 065
  60. PARACETAMOL ALTER [Suspect]
     Active Substance: ACETAMINOPHEN
     Indication: COMPLEX REGIONAL PAIN SYNDROME
  61. ROSILAN [Suspect]
     Active Substance: DEFLAZACORT
     Indication: COMPLEX REGIONAL PAIN SYNDROME
     Dosage: UNK
     Route: 065
  62. TRITICUM AC [Suspect]
     Active Substance: TRAZODONE HYDROCHLORIDE
     Indication: SLEEP DISORDER
  63. VENLAFAXINE SANDOZ [Suspect]
     Active Substance: VENLAFAXINE HYDROCHLORIDE
     Indication: SKIN DISORDER
     Dosage: 150 MILLIGRAM, ONCE A DAY
     Route: 065
  64. DOLOCALMA [Suspect]
     Active Substance: METAMIZOLE MAGNESIUM
     Indication: SKIN DISORDER
     Dosage: UNK
     Route: 065
  65. DEFLAZACORTE 6 MG [Suspect]
     Active Substance: DEFLAZACORT
     Indication: SKIN DISORDER
  66. DULOXETINE 30 MG [Suspect]
     Active Substance: DULOXETINE
     Indication: SLEEP DISORDER
  67. PHENYTOIN. [Suspect]
     Active Substance: PHENYTOIN
     Indication: PRODUCT USED FOR UNKNOWN INDICATION
     Dosage: 200 MILLIGRAM, ONCE A DAY (100 MILLIGRAM, BID)
     Route: 065
  68. CODEINE;PARACETAMOL [Suspect]
     Active Substance: ACETAMINOPHEN\CODEINE PHOSPHATE
     Indication: PRODUCT USED FOR UNKNOWN INDICATION
     Dosage: 30/500MG THREE TIMES DAILY ONCE A DAY
     Route: 065
  69. CYCLOBENZAPRINE. [Suspect]
     Active Substance: CYCLOBENZAPRINE
     Indication: PRODUCT USED FOR UNKNOWN INDICATION
     Dosage: 10 MILLIGRAM, ONCE A DAY
     Route: 065
  70. DULOXETIN TEVA [Suspect]
     Active Substance: DULOXETINE HYDROCHLORIDE
     Indication: SKIN DISORDER
  71. ETORICOXIB MYLAN [Suspect]
     Active Substance: ETORICOXIB
     Indication: SKIN DISORDER
     Dosage: UNK
     Route: 065
  72. EXXIV [Suspect]
     Active Substance: ETORICOXIB
     Indication: COMPLEX REGIONAL PAIN SYNDROME
  73. IBUPROFENE MYLAN [Suspect]
     Active Substance: IBUPROFEN
     Indication: COMPLEX REGIONAL PAIN SYNDROME
  74. TARGIN [Suspect]
     Active Substance: NALOXONE HYDROCHLORIDE\OXYCODONE HYDROCHLORIDE
     Indication: SKIN DISORDER
     Dosage: UNK
     Route: 065
  75. TARGIN [Suspect]
     Active Substance: NALOXONE HYDROCHLORIDE\OXYCODONE HYDROCHLORIDE
     Indication: COMPLEX REGIONAL PAIN SYNDROME
  76. THROMBOCID [PENTOSAN POLYSULFATE SODIUM] [Suspect]
     Active Substance: PENTOSAN POLYSULFATE SODIUM
     Indication: SLEEP DISORDER
  77. UNISEDIL [Suspect]
     Active Substance: DIAZEPAM
     Indication: SKIN DISORDER
  78. VENLAFAXINE SANDOZ [Suspect]
     Active Substance: VENLAFAXINE HYDROCHLORIDE
     Indication: SLEEP DISORDER
  79. VENLAFAXIN MYLAN [Interacting]
     Active Substance: VENLAFAXINE HYDROCHLORIDE
     Indication: SKIN DISORDER
     Dosage: UNK
     Route: 065
  80. DEFLAZACORTE 30 MG [Suspect]
     Active Substance: DEFLAZACORT
     Indication: COMPLEX REGIONAL PAIN SYNDROME
  81. DULOXETINE 60 MG [Suspect]
     Active Substance: DULOXETINE
     Indication: PRODUCT USED FOR UNKNOWN INDICATION
     Dosage: UNK
     Route: 065
  82. DULOXETINE 30 MG [Suspect]
     Active Substance: DULOXETINE
     Indication: COMPLEX REGIONAL PAIN SYNDROME
     Dosage: 30 MILLIGRAM
     Route: 065
  83. TRAZODONE [Suspect]
     Active Substance: TRAZODONE HYDROCHLORIDE
     Indication: PRODUCT USED FOR UNKNOWN INDICATION
     Dosage: 150 MILLIGRAM, ONCE A DAY
     Route: 065
  84. CLONAZEPAM. [Suspect]
     Active Substance: CLONAZEPAM
     Indication: PRODUCT USED FOR UNKNOWN INDICATION
     Dosage: 0.5 MILLIGRAM, ONCE A DAY
     Route: 065
  85. IBURON [Suspect]
     Active Substance: IBUPROFEN
     Indication: COMPLEX REGIONAL PAIN SYNDROME
     Dosage: UNK
     Route: 065
  86. PALEXIA [Suspect]
     Active Substance: TAPENTADOL HYDROCHLORIDE
     Indication: COMPLEX REGIONAL PAIN SYNDROME
     Dosage: 100 MILLIGRAM
     Route: 065
  87. PALEXIA [Suspect]
     Active Substance: TAPENTADOL HYDROCHLORIDE
     Indication: SKIN DISORDER
  88. THROMBOCID [PENTOSAN POLYSULFATE SODIUM] [Suspect]
     Active Substance: PENTOSAN POLYSULFATE SODIUM
     Indication: COMPLEX REGIONAL PAIN SYNDROME
  89. TRENTAL [Suspect]
     Active Substance: PENTOXIFYLLINE
     Indication: SKIN DISORDER
  90. UNISEDIL [Suspect]
     Active Substance: DIAZEPAM
     Indication: SLEEP DISORDER

REACTIONS (19)
  - Muscular weakness [Unknown]
  - Joint contracture [Unknown]
  - Back pain [Unknown]
  - Hyperaesthesia [Unknown]
  - Hypotonia [Unknown]
  - Suicidal ideation [Unknown]
  - Major depression [Unknown]
  - Diarrhoea [Unknown]
  - Pain [Unknown]
  - Hyperhidrosis [Unknown]
  - Drug intolerance [Unknown]
  - Skin atrophy [Unknown]
  - Nausea [Unknown]
  - Neck pain [Unknown]
  - Peripheral coldness [Unknown]
  - Hypokinesia [Unknown]
  - Allodynia [Unknown]
  - Pyrexia [Unknown]
  - Oedema [Unknown]
